FAERS Safety Report 6096712-7 (Version None)
Quarter: 2009Q1

REPORT INFORMATION
  Report Type: 
  Country: None (occurrence: None)
  Receive Date: 20090225
  Receipt Date: 20090225
  Transmission Date: 20090719
  Serious: No
  Sender: FDA-Public Use
  Company Number: None

PATIENT
  Age: 65 Year
  Sex: Male

DRUGS (1)
  1. PENICILLIN [Suspect]
     Indication: ORAL SURGERY
     Dosage: 500 MG QID PO
     Route: 048
     Dates: start: 20090204, end: 20090210

REACTIONS (1)
  - RASH [None]
